FAERS Safety Report 16508851 (Version 4)
Quarter: 2019Q3

REPORT INFORMATION
  Report Type: Spontaneous
  Country: US (occurrence: US)
  Receive Date: 20190702
  Receipt Date: 20190910
  Transmission Date: 20191004
  Serious: No
  Sender: FDA-Public Use
  Company Number: US-AMGEN-USASP2019102600

PATIENT
  Age: 66 Year
  Sex: Female
  Weight: 71.2 kg

DRUGS (1)
  1. PROLIA [Suspect]
     Active Substance: DENOSUMAB
     Indication: OSTEOPOROSIS POSTMENOPAUSAL
     Dosage: 60 MILLIGRAM, Q6MO
     Route: 058
     Dates: start: 201808, end: 201903

REACTIONS (8)
  - Oral mucosal eruption [Unknown]
  - Stomatitis [Unknown]
  - Hypersensitivity [Recovering/Resolving]
  - Dyspepsia [Recovering/Resolving]
  - Fatigue [Recovering/Resolving]
  - Abdominal pain [Unknown]
  - Taste disorder [Recovering/Resolving]
  - Diarrhoea [Unknown]

NARRATIVE: CASE EVENT DATE: 201808
